FAERS Safety Report 10528775 (Version 1)
Quarter: 2014Q4

REPORT INFORMATION
  Report Type: Spontaneous
  Country: US (occurrence: None)
  Receive Date: 20141017
  Receipt Date: 20141017
  Transmission Date: 20150528
  Serious: Yes (Other)
  Sender: FDA-Public Use
  Company Number: None

PATIENT
  Sex: Female
  Weight: 70 kg

DRUGS (1)
  1. PROPOFOL. [Suspect]
     Active Substance: PROPOFOL
     Indication: ANAESTHESIA
     Dosage: VIAL
     Dates: start: 20141015, end: 20141015

REACTIONS (2)
  - Device breakage [None]
  - Accidental exposure to product [None]

NARRATIVE: CASE EVENT DATE: 20141015
